FAERS Safety Report 15867452 (Version 1)
Quarter: 2019Q1

REPORT INFORMATION
  Report Type: Spontaneous
  Country: US (occurrence: US)
  Receive Date: 20190125
  Receipt Date: 20190125
  Transmission Date: 20190417
  Serious: No
  Sender: FDA-Public Use
  Company Number: US-MYLANLABS-2019M1003545

PATIENT

DRUGS (2)
  1. ESTRADIOL TRANSDERMAL SYSTEM [Suspect]
     Active Substance: ESTRADIOL
     Indication: HORMONE REPLACEMENT THERAPY
     Dosage: UNK
     Route: 062
  2. PROGESTIN [Concomitant]
     Active Substance: PROGESTERONE
     Dosage: UNK

REACTIONS (4)
  - Application site pruritus [Not Recovered/Not Resolved]
  - Hypersensitivity [Unknown]
  - Product size issue [Unknown]
  - Application site rash [Not Recovered/Not Resolved]

NARRATIVE: CASE EVENT DATE: 20190114
